FAERS Safety Report 7298806-7 (Version None)
Quarter: 2011Q1

REPORT INFORMATION
  Report Type: 
  Country: None (occurrence: None)
  Receive Date: 20110217
  Receipt Date: 20110204
  Transmission Date: 20110831
  Serious: Yes (Hospitalization)
  Sender: FDA-Public Use
  Company Number: FR-ROCHE-753717

PATIENT
  Sex: Female

DRUGS (5)
  1. SERESTA [Suspect]
     Dosage: DOSE: 39 TABLETS.
     Route: 048
  2. TERCIAN [Suspect]
     Dosage: DOSE: 20 TABLETS.
     Route: 048
  3. MEPRONIZINE [Suspect]
     Dosage: DOSE: 50 TABLETS.
     Route: 048
  4. VALIUM [Suspect]
     Dosage: DOSE: 14 TABLETS
     Route: 048
  5. ATARAX [Suspect]
     Dosage: DOSE: 45 TABLETS.
     Route: 048

REACTIONS (2)
  - TOXICITY TO VARIOUS AGENTS [None]
  - NERVOUS SYSTEM DISORDER [None]
